FAERS Safety Report 7883185-4 (Version None)
Quarter: 2011Q4

REPORT INFORMATION
  Report Type: 
  Country: None (occurrence: None)
  Receive Date: 20111031
  Receipt Date: 20111017
  Transmission Date: 20120403
  Serious: Yes (Hospitalization)
  Sender: FDA-Public Use
  Company Number: FK201102314

PATIENT
  Age: 68 Year
  Sex: Female

DRUGS (8)
  1. VELCADE [Suspect]
     Indication: MULTIPLE MYELOMA
     Dosage: 3.2 MG, Q 1 WK INTRAVENOUS (NOT OTHERWISE SPECIFIED)
     Route: 042
     Dates: start: 20110412, end: 20110713
  2. VANCOMYCIN HYCHLORIDE [Concomitant]
  3. PROTONIX (PROTONIX) (PROTONIX) [Concomitant]
  4. LEVAQUIN (LEVAQUIN) (LEVAQUIN) [Concomitant]
  5. ACETAMINPHEN W/HYDROCODONE (PROCET /01554201/) [Concomitant]
  6. HYDROCHLOROTHIAZIDE W/TRIAMTERENE (DYAZIDE) [Concomitant]
  7. DEXAMETHASONE SODIUM PHOSPHATE [Suspect]
     Indication: MULTIPLE MYELOMA
     Dosage: 20 MG, DAILY X 1 DAY, INTRAVENOUS (NOT OTHERWISE SPECIFIED)
     Route: 042
     Dates: start: 20110404, end: 20110713
  8. RENVELA [Concomitant]

REACTIONS (1)
  - ABDOMINAL PAIN [None]
